FAERS Safety Report 19015264 (Version 1)
Quarter: 2021Q1

REPORT INFORMATION
  Report Type: Spontaneous
  Country: DE (occurrence: DE)
  Receive Date: 20210317
  Receipt Date: 20210317
  Transmission Date: 20210420
  Serious: Yes (Death, Life-Threatening, Hospitalization, Other)
  Sender: FDA-Public Use
  Company Number: DE-MACLEODS PHARMACEUTICALS US LTD-MAC2021030452

PATIENT

DRUGS (3)
  1. BISOPROLOL 5 MG TABLET [Suspect]
     Active Substance: BISOPROLOL
     Indication: PRODUCT USED FOR UNKNOWN INDICATION
     Dosage: 90 DOSAGE FORM, SINGLE
     Route: 048
  2. METFORMIN [Suspect]
     Active Substance: METFORMIN HYDROCHLORIDE
     Indication: PRODUCT USED FOR UNKNOWN INDICATION
     Dosage: UNK
     Route: 048
  3. AMLODIPINE [Suspect]
     Active Substance: AMLODIPINE BESYLATE
     Indication: PRODUCT USED FOR UNKNOWN INDICATION
     Dosage: UNK
     Route: 048

REACTIONS (12)
  - Rhabdomyolysis [Fatal]
  - Ischaemia [Fatal]
  - Compartment syndrome [Fatal]
  - Multiple organ dysfunction syndrome [Fatal]
  - Cardiogenic shock [Fatal]
  - Vasoplegia syndrome [Fatal]
  - Intentional overdose [Fatal]
  - Toxicity to various agents [Fatal]
  - Ejection fraction decreased [Fatal]
  - Cardiac arrest [Fatal]
  - Circulatory collapse [Fatal]
  - Lactic acidosis [Fatal]
